FAERS Safety Report 23711856 (Version 2)
Quarter: 2024Q2

REPORT INFORMATION
  Report Type: Spontaneous
  Country: US (occurrence: US)
  Receive Date: 20240405
  Receipt Date: 20240520
  Transmission Date: 20240716
  Serious: Yes (Other)
  Sender: FDA-Public Use
  Company Number: US-MYOVANT SCIENCES GMBH-2024MYSCI0301112

PATIENT
  Sex: Male

DRUGS (1)
  1. ORGOVYX [Suspect]
     Active Substance: RELUGOLIX
     Indication: Prostate cancer
     Dosage: UNKNOWN
     Route: 065
     Dates: start: 202212

REACTIONS (4)
  - Hepatitis [Unknown]
  - Hepatic pain [Not Recovered/Not Resolved]
  - Antinuclear antibody positive [Unknown]
  - Anti-RNA polymerase III antibody positive [Unknown]
